FAERS Safety Report 11952129 (Version 1)
Quarter: 2016Q1

REPORT INFORMATION
  Report Type: Spontaneous
  Country: GB (occurrence: GB)
  Receive Date: 20160125
  Receipt Date: 20160125
  Transmission Date: 20160526
  Serious: Yes (Hospitalization)
  Sender: FDA-Public Use
  Company Number: GB-AUROBINDO-AUR-APL-2016-00360

PATIENT
  Age: 60 Year
  Sex: Female

DRUGS (1)
  1. NAPROXEN TABLETS 500 MG [Suspect]
     Active Substance: NAPROXEN
     Indication: PRODUCT USED FOR UNKNOWN INDICATION
     Dosage: 500 MG, TWO TIMES A DAY
     Route: 048

REACTIONS (8)
  - Melaena [Recovering/Resolving]
  - Erythema [Recovering/Resolving]
  - Gastrointestinal haemorrhage [Recovering/Resolving]
  - Gastric ulcer [Unknown]
  - Abdominal pain [Recovering/Resolving]
  - Arthralgia [Recovering/Resolving]
  - Duodenitis [Recovering/Resolving]
  - Nausea [Recovering/Resolving]

NARRATIVE: CASE EVENT DATE: 20150103
